FAERS Safety Report 18513276 (Version 5)
Quarter: 2021Q1

REPORT INFORMATION
  Report Type: Spontaneous
  Country: JP (occurrence: JP)
  Receive Date: 20201118
  Receipt Date: 20210330
  Transmission Date: 20210419
  Serious: Yes (Hospitalization, Other)
  Sender: FDA-Public Use
  Company Number: JP-ROCHE-2715947

PATIENT
  Age: 80 Year
  Sex: Female
  Weight: 38 kg

DRUGS (8)
  1. GAZYVA [Suspect]
     Active Substance: OBINUTUZUMAB
     Indication: B-CELL LYMPHOMA
     Dosage: RECENT DOSE ON 10/SEP/2020
     Route: 041
     Dates: start: 20190801
  2. ATORVASTATIN [Concomitant]
     Active Substance: ATORVASTATIN
     Indication: DYSLIPIDAEMIA
     Route: 048
     Dates: start: 201601
  3. DENOTAS [Concomitant]
     Active Substance: CALCIUM CARBONATE\CHOLECALCIFEROL\MAGNESIUM CARBONATE
     Indication: PROPHYLAXIS
     Route: 048
     Dates: start: 20190726
  4. DENOSINE (JAPAN) [Suspect]
     Active Substance: GANCICLOVIR
     Route: 041
     Dates: start: 20201120, end: 20201130
  5. VALIXA [Suspect]
     Active Substance: VALGANCICLOVIR
     Indication: CYTOMEGALOVIRUS ENTEROCOLITIS
     Route: 048
     Dates: start: 20201201, end: 20201219
  6. AMLODIPINE [Concomitant]
     Active Substance: AMLODIPINE BESYLATE
     Indication: HYPERTENSION
     Route: 048
     Dates: start: 201601
  7. RANMARK [Concomitant]
     Active Substance: DENOSUMAB
     Indication: BONE LESION
     Route: 058
     Dates: start: 20190726
  8. DENOSINE (JAPAN) [Suspect]
     Active Substance: GANCICLOVIR
     Indication: CYTOMEGALOVIRUS ENTEROCOLITIS
     Route: 041
     Dates: start: 20201112, end: 20201119

REACTIONS (4)
  - Cytomegalovirus enterocolitis [Recovering/Resolving]
  - Anaemia [Recovered/Resolved]
  - Hypogammaglobulinaemia [Not Recovered/Not Resolved]
  - Platelet count decreased [Recovered/Resolved]

NARRATIVE: CASE EVENT DATE: 20201109
